FAERS Safety Report 19003061 (Version 11)
Quarter: 2023Q2

REPORT INFORMATION
  Report Type: Report from Study
  Country: JP (occurrence: JP)
  Receive Date: 20210312
  Receipt Date: 20230630
  Transmission Date: 20230721
  Serious: Yes (Hospitalization)
  Sender: FDA-Public Use
  Company Number: JP-JNJFOC-A-CH2019-194043

PATIENT
  Age: 5 Year
  Sex: Female

DRUGS (70)
  1. OPSUMIT [Suspect]
     Active Substance: MACITENTAN
     Indication: Pulmonary arterial hypertension
     Dosage: 3 MG, IN THE EVENING
     Route: 048
     Dates: start: 20170321, end: 20180913
  2. OPSUMIT [Suspect]
     Active Substance: MACITENTAN
     Indication: Pulmonary arterial hypertension
     Dosage: 1.5 MG, IN THE EVENING
     Route: 048
     Dates: start: 20170221, end: 20170320
  3. OPSUMIT [Suspect]
     Active Substance: MACITENTAN
     Indication: Pulmonary arterial hypertension
     Dosage: 3.2 MG, IN THE EVENING
     Route: 048
     Dates: start: 20180913, end: 20181015
  4. OPSUMIT [Suspect]
     Active Substance: MACITENTAN
     Dosage: 3.4 MG, IN THE EVENING
     Route: 048
     Dates: start: 20181016
  5. OPSUMIT [Suspect]
     Active Substance: MACITENTAN
     Route: 048
     Dates: start: 20180914
  6. UPTRAVI [Suspect]
     Active Substance: SELEXIPAG
     Indication: Pulmonary arterial hypertension
     Dosage: 0.06-0.12MG
     Route: 048
     Dates: start: 20180116
  7. UPTRAVI [Suspect]
     Active Substance: SELEXIPAG
     Indication: Pulmonary arterial hypertension
     Dosage: 0.12 - 0.544MG
     Route: 048
  8. UPTRAVI [Suspect]
     Active Substance: SELEXIPAG
     Route: 048
  9. UPTRAVI [Suspect]
     Active Substance: SELEXIPAG
     Dosage: 0.06-0.12MG
     Route: 048
     Dates: start: 20180116, end: 20180220
  10. UPTRAVI [Suspect]
     Active Substance: SELEXIPAG
     Dosage: 0.06-0.12MG
     Route: 048
     Dates: start: 20180221, end: 20180320
  11. UPTRAVI [Suspect]
     Active Substance: SELEXIPAG
     Dosage: 0.06-0.12MG
     Route: 048
     Dates: start: 20180321, end: 20180417
  12. UPTRAVI [Suspect]
     Active Substance: SELEXIPAG
     Dosage: 0.06-0.12MG
     Route: 048
     Dates: start: 20180418, end: 20180515
  13. UPTRAVI [Suspect]
     Active Substance: SELEXIPAG
     Dosage: 0.06-0.12MG
     Route: 048
     Dates: start: 20180516, end: 20180612
  14. UPTRAVI [Suspect]
     Active Substance: SELEXIPAG
     Dosage: 0.06-0.12MG
     Route: 048
     Dates: start: 20180613, end: 20180710
  15. UPTRAVI [Suspect]
     Active Substance: SELEXIPAG
     Dosage: 0.06-0.12MG
     Route: 048
     Dates: start: 20180711, end: 20180814
  16. UPTRAVI [Suspect]
     Active Substance: SELEXIPAG
     Dosage: 0.06-0.12MG
     Route: 048
     Dates: start: 20180815, end: 20180913
  17. UPTRAVI [Suspect]
     Active Substance: SELEXIPAG
     Dosage: 0.06-0.12MG
     Route: 048
     Dates: start: 20180914, end: 20181016
  18. UPTRAVI [Suspect]
     Active Substance: SELEXIPAG
     Dosage: 0.06-0.12MG
     Route: 048
     Dates: start: 20181017
  19. UPTRAVI [Suspect]
     Active Substance: SELEXIPAG
     Route: 048
     Dates: start: 20200520, end: 20200827
  20. UPTRAVI [Suspect]
     Active Substance: SELEXIPAG
     Route: 048
     Dates: start: 20200828
  21. ENALAPRIL MALEATE [Concomitant]
     Active Substance: ENALAPRIL MALEATE
     Indication: Pulmonary arterial hypertension
     Route: 048
     Dates: start: 20170124, end: 20180913
  22. ENALAPRIL MALEATE [Concomitant]
     Active Substance: ENALAPRIL MALEATE
     Dosage: 1.5-1.7MG
     Route: 048
  23. ENALAPRIL MALEATE [Concomitant]
     Active Substance: ENALAPRIL MALEATE
     Route: 048
     Dates: start: 20190329
  24. ENALAPRIL MALEATE [Concomitant]
     Active Substance: ENALAPRIL MALEATE
     Route: 048
     Dates: start: 20190401, end: 20191208
  25. ENALAPRIL MALEATE [Concomitant]
     Active Substance: ENALAPRIL MALEATE
     Route: 048
     Dates: start: 20191213
  26. ENALAPRIL MALEATE [Concomitant]
     Active Substance: ENALAPRIL MALEATE
     Route: 048
     Dates: start: 20180914, end: 20191209
  27. ADCIRCA [Concomitant]
     Active Substance: TADALAFIL
     Indication: Pulmonary arterial hypertension
     Route: 048
     Dates: start: 20170124, end: 20180913
  28. ADCIRCA [Concomitant]
     Active Substance: TADALAFIL
     Indication: Pulmonary arterial hypertension
     Dosage: 15-17MG
     Route: 048
  29. ADCIRCA [Concomitant]
     Active Substance: TADALAFIL
     Indication: Pulmonary arterial hypertension
     Route: 048
     Dates: start: 20170124
  30. ADCIRCA [Concomitant]
     Active Substance: TADALAFIL
     Route: 048
     Dates: start: 20180914
  31. ADCIRCA [Concomitant]
     Active Substance: TADALAFIL
     Route: 048
     Dates: start: 20170125, end: 20180913
  32. ADCIRCA [Concomitant]
     Active Substance: TADALAFIL
     Dosage: AT 18-19 MG/DAY
     Route: 048
     Dates: start: 20200520
  33. BERAPROST SODIUM [Concomitant]
     Active Substance: BERAPROST SODIUM
     Indication: Pulmonary arterial hypertension
     Route: 048
     Dates: start: 20161222, end: 20171227
  34. FUROSEMIDE [Concomitant]
     Active Substance: FUROSEMIDE
     Indication: Pulmonary arterial hypertension
     Route: 048
     Dates: start: 20170124, end: 20180912
  35. FUROSEMIDE [Concomitant]
     Active Substance: FUROSEMIDE
     Indication: Cardiac failure
     Dosage: 11.5-12.5MG
     Route: 048
  36. FUROSEMIDE [Concomitant]
     Active Substance: FUROSEMIDE
     Route: 048
     Dates: start: 20190329
  37. FUROSEMIDE [Concomitant]
     Active Substance: FUROSEMIDE
     Route: 048
     Dates: start: 20190331, end: 20191208
  38. FUROSEMIDE [Concomitant]
     Active Substance: FUROSEMIDE
     Route: 048
     Dates: start: 20191213
  39. FUROSEMIDE [Concomitant]
     Active Substance: FUROSEMIDE
     Dates: start: 20191212, end: 20191212
  40. FUROSEMIDE [Concomitant]
     Active Substance: FUROSEMIDE
     Route: 048
     Dates: start: 20161222, end: 20180913
  41. FUROSEMIDE [Concomitant]
     Active Substance: FUROSEMIDE
     Route: 048
     Dates: start: 20180914, end: 20191209
  42. SPIRONOLACTONE [Concomitant]
     Active Substance: SPIRONOLACTONE
     Indication: Pulmonary arterial hypertension
     Route: 048
     Dates: start: 20170124
  43. SPIRONOLACTONE [Concomitant]
     Active Substance: SPIRONOLACTONE
     Dosage: 11.5-12.5MG
     Route: 048
  44. SPIRONOLACTONE [Concomitant]
     Active Substance: SPIRONOLACTONE
     Route: 048
     Dates: start: 20190329
  45. SPIRONOLACTONE [Concomitant]
     Active Substance: SPIRONOLACTONE
     Route: 048
     Dates: start: 20190331, end: 20191208
  46. SPIRONOLACTONE [Concomitant]
     Active Substance: SPIRONOLACTONE
     Route: 048
     Dates: start: 20191213
  47. SPIRONOLACTONE [Concomitant]
     Active Substance: SPIRONOLACTONE
     Route: 048
     Dates: start: 20161222, end: 20180913
  48. SPIRONOLACTONE [Concomitant]
     Active Substance: SPIRONOLACTONE
     Route: 048
     Dates: start: 20180914, end: 20191209
  49. WARFARIN POTASSIUM [Concomitant]
     Active Substance: WARFARIN POTASSIUM
     Indication: Pulmonary arterial hypertension
     Route: 048
     Dates: start: 20161122, end: 20180913
  50. WARFARIN POTASSIUM [Concomitant]
     Active Substance: WARFARIN POTASSIUM
     Dosage: 1.4-1.6MG
     Route: 048
  51. WARFARIN POTASSIUM [Concomitant]
     Active Substance: WARFARIN POTASSIUM
     Route: 048
     Dates: start: 20190330
  52. WARFARIN POTASSIUM [Concomitant]
     Active Substance: WARFARIN POTASSIUM
     Dosage: 1.6-1.7MG
     Route: 048
     Dates: start: 20190401
  53. WARFARIN POTASSIUM [Concomitant]
     Active Substance: WARFARIN POTASSIUM
     Route: 048
     Dates: start: 20180914, end: 20190723
  54. WARFARIN POTASSIUM [Concomitant]
     Active Substance: WARFARIN POTASSIUM
     Route: 048
     Dates: start: 20190724
  55. DIGOXIN [Concomitant]
     Active Substance: DIGOXIN
     Indication: Pulmonary arterial hypertension
     Route: 048
     Dates: start: 20160303, end: 20180913
  56. DIGOXIN [Concomitant]
     Active Substance: DIGOXIN
     Dosage: 0.05-0.0595MG
     Route: 048
  57. DIGOXIN [Concomitant]
     Active Substance: DIGOXIN
     Route: 048
     Dates: start: 20191208
  58. DIGOXIN [Concomitant]
     Active Substance: DIGOXIN
     Route: 048
     Dates: start: 20191213
  59. DIGOXIN [Concomitant]
     Active Substance: DIGOXIN
     Route: 048
     Dates: start: 20180914, end: 20191209
  60. CARVEDILOL [Concomitant]
     Active Substance: CARVEDILOL
     Indication: Pulmonary arterial hypertension
     Route: 048
     Dates: start: 20161222, end: 20180913
  61. CARVEDILOL [Concomitant]
     Active Substance: CARVEDILOL
     Dosage: 2.25-3.4MG
     Route: 048
     Dates: start: 20161222
  62. CARVEDILOL [Concomitant]
     Active Substance: CARVEDILOL
     Route: 048
     Dates: start: 20161222
  63. CARVEDILOL [Concomitant]
     Active Substance: CARVEDILOL
     Route: 048
     Dates: start: 20180914, end: 20190131
  64. CARVEDILOL [Concomitant]
     Active Substance: CARVEDILOL
     Route: 048
     Dates: start: 20190201
  65. HEPARIN [Concomitant]
     Active Substance: HEPARIN SODIUM
     Indication: Pulmonary arterial hypertension
     Dosage: 72.7-6109.1UNIT,SUSTAIN
     Route: 042
     Dates: start: 20191210, end: 20191218
  66. OXYGEN [Concomitant]
     Active Substance: OXYGEN
     Indication: Influenza
     Route: 055
     Dates: start: 20191209, end: 20191216
  67. DORMICUM [NITRAZEPAM] [Concomitant]
     Indication: Catheterisation cardiac
     Route: 065
     Dates: start: 20190104, end: 20190104
  68. FENTANYL [Concomitant]
     Active Substance: FENTANYL
     Indication: Catheterisation cardiac
     Route: 065
     Dates: start: 20190104, end: 20190104
  69. ULTIVA [Concomitant]
     Active Substance: REMIFENTANIL HYDROCHLORIDE
     Indication: Catheterisation cardiac
     Route: 065
     Dates: start: 20190104, end: 20190104
  70. ROCURONIUM BROMIDE [Concomitant]
     Active Substance: ROCURONIUM BROMIDE
     Indication: Catheterisation cardiac
     Route: 065
     Dates: start: 20190104, end: 20190104

REACTIONS (15)
  - Pneumonia [Recovering/Resolving]
  - Melaena [Recovered/Resolved]
  - Diarrhoea [Recovering/Resolving]
  - Pyrexia [Recovered/Resolved]
  - Vomiting [Recovered/Resolved]
  - Cough [Recovering/Resolving]
  - Anaemia [Recovering/Resolving]
  - Platelet count decreased [Recovering/Resolving]
  - White blood cell count decreased [Recovered/Resolved]
  - Off label use [Unknown]
  - Hypotension [Recovered/Resolved]
  - Product use issue [Unknown]
  - Upper respiratory tract inflammation [Recovering/Resolving]
  - Abdominal pain [Recovered/Resolved]
  - Rhinorrhoea [Recovering/Resolving]

NARRATIVE: CASE EVENT DATE: 20170221
